FAERS Safety Report 12660290 (Version 1)
Quarter: 2016Q3

REPORT INFORMATION
  Report Type: Other
  Country: None (occurrence: US)
  Receive Date: 20160817
  Receipt Date: 20160817
  Transmission Date: 20161109
  Serious: Yes (Other)
  Sender: FDA-Public Use
  Company Number: US-GUTHY-RENKER LLC-1056425

PATIENT
  Age: 33 Year
  Sex: Female

DRUGS (2)
  1. IT COSMETICS BYE BYE FOUNDATION SPF 50+ [Suspect]
     Active Substance: TITANIUM DIOXIDE\ZINC OXIDE
     Indication: PROPHYLAXIS AGAINST SOLAR RADIATION
     Route: 061
     Dates: start: 20160805, end: 20160806
  2. ANTIBIOTICS,  METHOTREXATE [Concomitant]

REACTIONS (4)
  - Throat irritation [None]
  - Swelling face [Unknown]
  - Rash pruritic [None]
  - Paraesthesia [None]

NARRATIVE: CASE EVENT DATE: 20160806
